FAERS Safety Report 5361075-9 (Version None)
Quarter: 2007Q2

REPORT INFORMATION
  Report Type: 
  Country: None (occurrence: None)
  Receive Date: 20070618
  Receipt Date: 20070606
  Transmission Date: 20071010
  Serious: Yes (Other)
  Sender: FDA-Public Use
  Company Number: FI-PFIZER INC-2007047958

PATIENT
  Sex: Male

DRUGS (10)
  1. CHAMPIX [Suspect]
     Indication: EX-SMOKER
     Route: 048
     Dates: start: 20070101, end: 20070521
  2. VIAGRA [Concomitant]
  3. ATROVENT COMP [Concomitant]
  4. DIUREX [Concomitant]
  5. PANACOD [Concomitant]
  6. MONTELUKAST SODIUM [Concomitant]
  7. COZAAR [Concomitant]
  8. AVANDIA [Concomitant]
  9. SIMVASTATIN [Concomitant]
  10. PREDNISOLONE [Concomitant]
     Indication: DYSPNOEA

REACTIONS (5)
  - DYSPNOEA [None]
  - OEDEMA [None]
  - OEDEMA MOUTH [None]
  - PRURITUS [None]
  - URTICARIA [None]
